FAERS Safety Report 4379251-0 (Version None)
Quarter: 2004Q2

REPORT INFORMATION
  Report Type: 
  Country: None (occurrence: None)
  Receive Date: 20040610
  Receipt Date: 20040528
  Transmission Date: 20050107
  Serious: Yes (Other)
  Sender: FDA-Public Use
  Company Number: JP-JNJFOC-20040500003

PATIENT
  Age: 17 Year
  Sex: Female

DRUGS (1)
  1. ITRACONAZOLE [Suspect]
     Indication: ONYCHOMYCOSIS
     Dosage: 400 MG, 1 IN 1 DAY, ORAL
     Route: 048
     Dates: start: 20040416, end: 20040422

REACTIONS (3)
  - BLOOD UREA DECREASED [None]
  - EXCESSIVE EXERCISE [None]
  - RHABDOMYOLYSIS [None]
